FAERS Safety Report 21098838 (Version 7)
Quarter: 2022Q4

REPORT INFORMATION
  Report Type: Report from Study
  Country: US (occurrence: US)
  Receive Date: 20220719
  Receipt Date: 20221221
  Transmission Date: 20230113
  Serious: Yes (Other)
  Sender: FDA-Public Use
  Company Number: US-ABBVIE-22K-163-4469229-00

PATIENT
  Age: 64 Year
  Sex: Female

DRUGS (3)
  1. VENCLEXTA [Suspect]
     Active Substance: VENETOCLAX
     Indication: Plasma cell myeloma
     Dosage: 1TAB/DAY FOR 14 DAYS ON, THEN 14DAYS OFF
     Route: 048
     Dates: start: 20220712
  2. VENCLEXTA [Suspect]
     Active Substance: VENETOCLAX
     Indication: Plasma cell myeloma
     Route: 048
  3. VENCLEXTA [Suspect]
     Active Substance: VENETOCLAX
     Indication: Plasma cell myeloma
     Dosage: DOSE 400 MG- TAKE 4 TABLET(S)DAILY
     Route: 048
     Dates: start: 20220711, end: 20220711

REACTIONS (6)
  - Chemotherapy [Unknown]
  - Laboratory test abnormal [Unknown]
  - Depressed mood [Not Recovered/Not Resolved]
  - Off label use [Unknown]
  - Vomiting [Not Recovered/Not Resolved]
  - Hypophagia [Unknown]

NARRATIVE: CASE EVENT DATE: 20220711
